FAERS Safety Report 14073074 (Version 1)
Quarter: 2017Q4

REPORT INFORMATION
  Report Type: Spontaneous
  Country: US (occurrence: US)
  Receive Date: 20171011
  Receipt Date: 20171011
  Transmission Date: 20180321
  Serious: No
  Sender: FDA-Public Use
  Company Number: US-ASTRAZENECA-2017SE39725

PATIENT
  Age: 12019 Day
  Sex: Female
  Weight: 81.6 kg

DRUGS (1)
  1. ZOMIG [Suspect]
     Active Substance: ZOLMITRIPTAN
     Indication: MIGRAINE
     Route: 045
     Dates: start: 20170406

REACTIONS (2)
  - Rash [Not Recovered/Not Resolved]
  - Mass [Unknown]

NARRATIVE: CASE EVENT DATE: 20170406
